FAERS Safety Report 6530035-4 (Version None)
Quarter: 2010Q1

REPORT INFORMATION
  Report Type: 
  Country: None (occurrence: None)
  Receive Date: 20100107
  Receipt Date: 20100104
  Transmission Date: 20100710
  Serious: Yes (Death)
  Sender: FDA-Public Use
  Company Number: US-GILEAD-2009-0025665

PATIENT
  Sex: Female
  Weight: 49.486 kg

DRUGS (11)
  1. LETAIRIS [Suspect]
     Indication: PULMONARY ARTERIAL HYPERTENSION
     Route: 048
     Dates: start: 20090811, end: 20091123
  2. REVATIO [Concomitant]
  3. AMOXIL [Concomitant]
  4. MOTRIN [Concomitant]
  5. PERCOCET [Concomitant]
  6. XANAX [Concomitant]
  7. CELEXA [Concomitant]
  8. OXYCONTIN [Concomitant]
  9. MAALOX ADVANCED [Concomitant]
  10. PREVACID [Concomitant]
  11. GAS X EX [Concomitant]

REACTIONS (1)
  - DEATH [None]
